FAERS Safety Report 20684358 (Version 2)
Quarter: 2022Q2

REPORT INFORMATION
  Report Type: Spontaneous
  Country: US (occurrence: None)
  Receive Date: 20220407
  Receipt Date: 20220505
  Transmission Date: 20220721
  Serious: No
  Sender: FDA-Public Use
  Company Number: 2022A106682

PATIENT
  Age: 23223 Day
  Sex: Female
  Weight: 52.2 kg

DRUGS (1)
  1. FASENRA [Suspect]
     Active Substance: BENRALIZUMAB
     Indication: Asthma
     Route: 058
     Dates: start: 20220223

REACTIONS (6)
  - Dyspnoea [Not Recovered/Not Resolved]
  - Feeling abnormal [Unknown]
  - Wheezing [Unknown]
  - Nausea [Recovered/Resolved]
  - Therapeutic response shortened [Unknown]
  - Decreased activity [Unknown]

NARRATIVE: CASE EVENT DATE: 20220307
